FAERS Safety Report 12458613 (Version 1)
Quarter: 2016Q2

REPORT INFORMATION
  Report Type: Spontaneous
  Country: US (occurrence: None)
  Receive Date: 20160610
  Receipt Date: 20160610
  Transmission Date: 20160815
  Serious: No
  Sender: FDA-Public Use
  Company Number: None

PATIENT
  Sex: Female

DRUGS (3)
  1. NORCO [Suspect]
     Active Substance: ACETAMINOPHEN\HYDROCODONE BITARTRATE
  2. OXYBUTYNIN [Suspect]
     Active Substance: OXYBUTYNIN
  3. VESICARE [Suspect]
     Active Substance: SOLIFENACIN SUCCINATE

REACTIONS (5)
  - Drug ineffective [None]
  - Back disorder [None]
  - Pain [None]
  - Fall [None]
  - Joint lock [None]
